FAERS Safety Report 6778112-7 (Version None)
Quarter: 2010Q2

REPORT INFORMATION
  Report Type: 
  Country: None (occurrence: None)
  Receive Date: 20100618
  Receipt Date: 20100609
  Transmission Date: 20101027
  Serious: No
  Sender: FDA-Public Use
  Company Number: US-BIOGENIDEC-2010BI019753

PATIENT
  Age: 51 Year
  Sex: Female

DRUGS (3)
  1. AVONEX [Suspect]
     Indication: MULTIPLE SCLEROSIS
     Route: 030
     Dates: start: 19980529, end: 20061129
  2. AVONEX [Suspect]
     Route: 030
     Dates: start: 20070308, end: 20070829
  3. AVONEX [Suspect]
     Route: 030
     Dates: start: 20071031, end: 20071231

REACTIONS (1)
  - ADVERSE EVENT [None]
